FAERS Safety Report 6679652 (Version 17)
Quarter: 2013Q4

REPORT INFORMATION
  Report Type: Spontaneous
  Country: US (occurrence: US)
  Receive Date: 20080624
  Receipt Date: 20131004
  Transmission Date: 20140711
  Serious: Yes (Congenital Anomaly, Other)
  Sender: FDA-Public Use
  Company Number: US-PFIZER INC-2008049925

PATIENT
  Sex: Male
  Weight: 4 kg

DRUGS (29)
  1. ZOLOFT [Suspect]
     Indication: DEPRESSION
     Dosage: UNK
     Route: 064
     Dates: start: 1997, end: 1999
  2. ZOLOFT [Suspect]
     Indication: ANXIETY
     Dosage: UNK
     Route: 064
     Dates: start: 20030210, end: 2007
  3. ZOLOFT [Suspect]
     Dosage: 100 MG, 1X/DAY
     Route: 064
     Dates: start: 200406
  4. ZOLOFT [Suspect]
     Dosage: 50 MG, 1X/DAY
     Route: 064
     Dates: start: 200408
  5. ALBUTEROL [Concomitant]
     Dosage: EVERY 4 TO 6 HOURS
     Route: 064
  6. FLOVENT [Concomitant]
     Dosage: UNK G, 2X/DAY
     Route: 064
  7. PRENATAL VITAMINS [Concomitant]
     Dosage: UNK
     Route: 064
  8. HYDROCODONE W/ACETAMINOPHEN [Concomitant]
     Dosage: 7.5/750 MG, 3XDAY
     Route: 064
  9. AMOXICILLIN [Concomitant]
     Dosage: 500 MG, 3X/DAY
     Route: 064
  10. NITROFURANTOIN [Concomitant]
     Dosage: 100 MG, 2X/DAY
     Route: 064
  11. XANAX [Concomitant]
     Dosage: UNK
     Route: 064
  12. ORTHO EVRA [Concomitant]
     Dosage: UNK
     Route: 064
  13. HYDROCODONE [Concomitant]
     Dosage: UNK
     Route: 064
  14. TYLENOL [Concomitant]
     Dosage: UNK
     Route: 064
  15. IBUPROFEN [Concomitant]
     Dosage: UNK
     Route: 064
  16. TUMS [Concomitant]
     Dosage: UNK
     Route: 064
  17. IRON [Concomitant]
     Dosage: UNK
     Route: 064
  18. MULTIVITAMINS [Concomitant]
     Dosage: UNK
     Route: 064
  19. SUDAFED [Concomitant]
     Dosage: UNK
     Route: 064
  20. METHERGINE [Concomitant]
     Dosage: UNK
     Route: 064
  21. ALPRAZOLAM [Concomitant]
     Dosage: UNK
     Route: 064
  22. PREDNISONE [Concomitant]
     Dosage: UNK
     Route: 064
  23. LEVORA [Concomitant]
     Dosage: UNK
     Route: 064
  24. NORDETTE [Concomitant]
     Dosage: UNK
     Route: 064
  25. PYRIDIUM [Concomitant]
     Dosage: UNK
     Route: 064
  26. TRIAMCIN [Concomitant]
     Dosage: UNK
     Route: 064
  27. DIAZEPAM [Concomitant]
     Dosage: UNK
     Route: 064
  28. DOXYCYCLINE [Concomitant]
     Dosage: UNK
     Route: 064
  29. VIOXX [Concomitant]
     Dosage: UNK
     Route: 064

REACTIONS (6)
  - Foetal exposure during pregnancy [Unknown]
  - Pulmonary valve stenosis congenital [Unknown]
  - Pulmonary valve incompetence [Recovered/Resolved]
  - Congenital arterial malformation [Unknown]
  - Jaundice neonatal [Unknown]
  - Pyelocaliectasis [Unknown]
